FAERS Safety Report 5412794-7 (Version None)
Quarter: 2007Q3

REPORT INFORMATION
  Report Type: 
  Country: None (occurrence: None)
  Receive Date: 20070713
  Receipt Date: 20070323
  Transmission Date: 20080115
  Serious: No
  Sender: FDA-Public Use
  Company Number: 2007SP001060

PATIENT
  Age: 53 Year
  Sex: Female
  Weight: 46.2669 kg

DRUGS (1)
  1. LUNESTA [Suspect]
     Dosage: 2 MG; ORAL
     Route: 048
     Dates: start: 20070322, end: 20070325

REACTIONS (8)
  - ABDOMINAL PAIN UPPER [None]
  - ABNORMAL BEHAVIOUR [None]
  - DRUG INEFFECTIVE [None]
  - DYSGEUSIA [None]
  - HYPERHIDROSIS [None]
  - INSOMNIA [None]
  - SOMNOLENCE [None]
  - SUICIDAL IDEATION [None]
